FAERS Safety Report 6784797-1 (Version None)
Quarter: 2010Q2

REPORT INFORMATION
  Report Type: 
  Country: None (occurrence: None)
  Receive Date: 20100622
  Receipt Date: 20100611
  Transmission Date: 20101027
  Serious: Yes (Other)
  Sender: FDA-Public Use
  Company Number: PHHY2010IT38315

PATIENT
  Sex: Female

DRUGS (13)
  1. GLEEVEC [Suspect]
     Indication: CHRONIC MYELOID LEUKAEMIA
     Dosage: 400 MG DAILY
     Route: 048
     Dates: start: 20001101
  2. GLEEVEC [Suspect]
     Dosage: 300 MG/ DAY
     Route: 048
  3. GLEEVEC [Suspect]
     Dosage: 200 MG/ DAY
     Route: 048
  4. GLEEVEC [Suspect]
     Dosage: 800 MG DAILY
     Route: 048
  5. GLEEVEC [Suspect]
     Dosage: 400 MG DAILY
     Route: 048
  6. ONCO-CARBIDE [Concomitant]
  7. PURINETHOL [Concomitant]
  8. ARACYTIN [Concomitant]
  9. ENAPREN [Concomitant]
     Dosage: 20 MG
     Route: 048
  10. CIPROXIN [Concomitant]
     Dosage: 1000 MG
     Route: 048
  11. NORVASC [Concomitant]
     Dosage: 10 MG
     Route: 048
  12. LOSEC I.V. [Concomitant]
     Route: 048
  13. LASIX [Concomitant]
     Dosage: 25 MG
     Route: 048

REACTIONS (9)
  - ANAEMIA [None]
  - BLAST CELLS PRESENT [None]
  - BONE PAIN [None]
  - CHRONIC MYELOID LEUKAEMIA [None]
  - DRUG INEFFECTIVE [None]
  - HAEMATOTOXICITY [None]
  - MALIGNANT NEOPLASM PROGRESSION [None]
  - MYALGIA [None]
  - SWELLING FACE [None]
